FAERS Safety Report 8389780-0 (Version None)
Quarter: 2012Q2

REPORT INFORMATION
  Report Type: 
  Country: None (occurrence: None)
  Receive Date: 20120529
  Receipt Date: 20120523
  Transmission Date: 20120825
  Serious: Yes (Other)
  Sender: FDA-Public Use
  Company Number: PHHY2012FR043545

PATIENT
  Sex: Female

DRUGS (2)
  1. LEXOMIL [Concomitant]
  2. GLEEVEC [Suspect]
     Indication: CHRONIC MYELOID LEUKAEMIA
     Dosage: 400 MG, DAILY
     Dates: start: 20020901

REACTIONS (5)
  - BLINDNESS [None]
  - RETINAL DISORDER [None]
  - VISUAL IMPAIRMENT [None]
  - FACIAL SPASM [None]
  - AGE-RELATED MACULAR DEGENERATION [None]
